FAERS Safety Report 23465716 (Version 4)
Quarter: 2025Q2

REPORT INFORMATION
  Report Type: Spontaneous
  Country: US (occurrence: US)
  Receive Date: 20240201
  Receipt Date: 20250421
  Transmission Date: 20250716
  Serious: No
  Sender: UCB
  Company Number: US-UCBSA-2024004547

PATIENT
  Sex: Male

DRUGS (1)
  1. NEUPRO [Suspect]
     Active Substance: ROTIGOTINE
     Indication: Restless legs syndrome
     Dosage: 1 DOSAGE FORM, ONCE DAILY (QD), 1 PATCH EVERY DAY
     Route: 062

REACTIONS (2)
  - Restless legs syndrome [Unknown]
  - Product adhesion issue [Unknown]
